FAERS Safety Report 8609603-1 (Version None)
Quarter: 2012Q3

REPORT INFORMATION
  Report Type: 
  Country: None (occurrence: None)
  Receive Date: 20120821
  Receipt Date: 20120810
  Transmission Date: 20120928
  Serious: Yes (Other)
  Sender: FDA-Public Use
  Company Number: US-PERRIGO-12US007074

PATIENT

DRUGS (1)
  1. ACETAMINOPHEN [Suspect]
     Indication: PRODUCT USED FOR UNKNOWN INDICATION
     Dosage: 10,000 MG IN 24 HOURS
     Route: 048
     Dates: start: 20120810

REACTIONS (2)
  - OVERDOSE [None]
  - VOMITING [None]
